FAERS Safety Report 7560474-4 (Version None)
Quarter: 2011Q2

REPORT INFORMATION
  Report Type: 
  Country: None (occurrence: None)
  Receive Date: 20110621
  Receipt Date: 20110615
  Transmission Date: 20111010
  Serious: Yes (Hospitalization)
  Sender: FDA-Public Use
  Company Number: IT-BRISTOL-MYERS SQUIBB COMPANY-15834906

PATIENT
  Age: 61 Year
  Sex: Female

DRUGS (4)
  1. VENTOLIN HFA [Concomitant]
  2. IRBESARTAN AND HYDROCHLOROTHIAZIDE [Suspect]
     Indication: HYPERTENSION
     Dosage: 1DF:1UNIT
     Route: 048
     Dates: start: 20101210, end: 20101221
  3. AMPICILLIN SODIUM [Concomitant]
  4. ISOPTIN [Concomitant]

REACTIONS (4)
  - FALL [None]
  - HEAD INJURY [None]
  - HYPOTENSION [None]
  - HYPONATRAEMIA [None]
